FAERS Safety Report 11371015 (Version 2)
Quarter: 2015Q3

REPORT INFORMATION
  Report Type: Spontaneous
  Country: CA (occurrence: None)
  Receive Date: 20150805
  Receipt Date: 20150902
  Transmission Date: 20151125
  Serious: Yes (Hospitalization, Other)
  Sender: FDA-Public Use
  Company Number: 003-306

PATIENT
  Age: 34 Year
  Sex: Male

DRUGS (1)
  1. CROFAB [Suspect]
     Active Substance: CROTALIDAE POLYVALENT IMMUNE FAB (OVINE)
     Indication: SNAKE BITE
     Dosage: 70 VIALS TOTAL
     Dates: start: 201507

REACTIONS (2)
  - Drug ineffective [None]
  - Thrombocytopenia [None]

NARRATIVE: CASE EVENT DATE: 201507
